FAERS Safety Report 5045244-3 (Version None)
Quarter: 2006Q3

REPORT INFORMATION
  Report Type: 
  Country: None (occurrence: None)
  Receive Date: 20060705
  Receipt Date: 20060614
  Transmission Date: 20061208
  Serious: Yes (Hospitalization, Other)
  Sender: FDA-Public Use
  Company Number: US200606004102

PATIENT
  Age: 49 Year
  Sex: Female

DRUGS (7)
  1. ZYPREXA [Suspect]
     Indication: BIPOLAR DISORDER
     Dosage: 5 MG,; 10 MG
     Dates: start: 20041115, end: 20051125
  2. ZYPREXA [Suspect]
     Indication: BIPOLAR DISORDER
     Dosage: 5 MG,; 10 MG
     Dates: start: 20040928
  3. SYMBYAX [Concomitant]
  4. DIAZEPAM [Concomitant]
  5. IBUPROFEN [Concomitant]
  6. OXYCODONE/APAP                                           (OXYCODONE, P [Concomitant]
  7. PERCOCET [Concomitant]

REACTIONS (7)
  - ALANINE AMINOTRANSFERASE INCREASED [None]
  - ASPARTATE AMINOTRANSFERASE INCREASED [None]
  - DIABETES MELLITUS [None]
  - HEPATITIS A ANTIBODY POSITIVE [None]
  - LYMPHOCYTE COUNT DECREASED [None]
  - RHABDOMYOLYSIS [None]
  - WHITE BLOOD CELL COUNT INCREASED [None]
